FAERS Safety Report 5156143-0 (Version None)
Quarter: 2006Q4

REPORT INFORMATION
  Report Type: 
  Country: None (occurrence: None)
  Receive Date: 20061122
  Receipt Date: 20061113
  Transmission Date: 20070319
  Serious: Yes (Death)
  Sender: FDA-Public Use
  Company Number: US-ROCHE-471282

PATIENT
  Age: 58 Year
  Sex: Female
  Weight: 95.7 kg

DRUGS (3)
  1. XELODA [Suspect]
     Indication: COLORECTAL CANCER
     Dosage: STRENGTH: 500
     Route: 048
     Dates: start: 20060615, end: 20061030
  2. OXALIPLATIN [Concomitant]
  3. IRINOTECAN HCL [Concomitant]

REACTIONS (3)
  - HEPATIC FAILURE [None]
  - PANCYTOPENIA [None]
  - SEPSIS [None]
